FAERS Safety Report 19069429 (Version 1)
Quarter: 2021Q1

REPORT INFORMATION
  Report Type: Spontaneous
  Country: US (occurrence: US)
  Receive Date: 20210329
  Receipt Date: 20210329
  Transmission Date: 20210420
  Serious: Yes (Hospitalization)
  Sender: FDA-Public Use
  Company Number: None

PATIENT
  Sex: Female

DRUGS (1)
  1. LATANOPROST 0.005% [Suspect]
     Active Substance: LATANOPROST

REACTIONS (3)
  - Headache [None]
  - Blood pressure abnormal [None]
  - Heart rate decreased [None]
